FAERS Safety Report 5771531-7 (Version None)
Quarter: 2008Q2

REPORT INFORMATION
  Report Type: 
  Country: None (occurrence: None)
  Receive Date: 20080611
  Receipt Date: 20080530
  Transmission Date: 20081010
  Serious: Yes (Hospitalization)
  Sender: FDA-Public Use
  Company Number: AZADE200800014

PATIENT
  Age: 64 Year
  Sex: Male

DRUGS (1)
  1. VIDAZA [Suspect]
     Indication: MYELODYSPLASTIC SYNDROME
     Dosage: (75 MG/M2), SUBCUTANEOUS
     Route: 058
     Dates: start: 20071008, end: 20071014

REACTIONS (4)
  - ABSCESS [None]
  - INJECTION SITE NECROSIS [None]
  - INJECTION SITE NODULE [None]
  - INJECTION SITE VASCULITIS [None]
